FAERS Safety Report 8474589-X (Version None)
Quarter: 2012Q2

REPORT INFORMATION
  Report Type: 
  Country: None (occurrence: None)
  Receive Date: 20120628
  Receipt Date: 20120625
  Transmission Date: 20120825
  Serious: Yes (Hospitalization, Other)
  Sender: FDA-Public Use
  Company Number: NL-GENZYME-CLOF-1002168

PATIENT
  Sex: Male
  Weight: 82 kg

DRUGS (6)
  1. CYTARABINE [Suspect]
     Dosage: 1850 MG, BID
     Route: 042
     Dates: start: 20111028, end: 20111102
  2. CYTARABINE [Suspect]
     Indication: ACUTE MYELOID LEUKAEMIA
     Dosage: 360 MG, UNK
     Route: 042
     Dates: start: 20110923, end: 20110929
  3. EVOLTRA [Suspect]
     Indication: ACUTE MYELOID LEUKAEMIA
     Dosage: 18 MG, UNK (CYCLE 1)
     Route: 042
     Dates: start: 20110923, end: 20110927
  4. EVOLTRA [Suspect]
     Dosage: 18 MG, UNK (CYCLE 2)
     Route: 042
     Dates: start: 20111028, end: 20111101
  5. IDARUBICIN HCL [Suspect]
     Indication: ACUTE MYELOID LEUKAEMIA
     Dosage: 22 MG, UNK
     Route: 065
     Dates: start: 20110923, end: 20110925
  6. AMSACRINE [Suspect]
     Indication: ACUTE MYELOID LEUKAEMIA
     Dosage: 220 MG, UNK
     Route: 042
     Dates: start: 20111031, end: 20111102

REACTIONS (11)
  - ANGINA PECTORIS [None]
  - STAPHYLOCOCCAL SEPSIS [None]
  - RASH GENERALISED [None]
  - SEPTIC SHOCK [None]
  - PANCYTOPENIA [None]
  - JUGULAR VEIN THROMBOSIS [None]
  - CENTRAL NERVOUS SYSTEM HAEMORRHAGE [None]
  - TRANSIENT ISCHAEMIC ATTACK [None]
  - MULTI-ORGAN FAILURE [None]
  - SPEECH DISORDER [None]
  - HYPERACUSIS [None]
